FAERS Safety Report 5853151-9 (Version None)
Quarter: 2008Q3

REPORT INFORMATION
  Report Type: 
  Country: None (occurrence: None)
  Receive Date: 20080821
  Receipt Date: 20080819
  Transmission Date: 20090109
  Serious: No
  Sender: FDA-Public Use
  Company Number: US-BOEHRINGER INGELHEIM GMBH, GERMANY-2008-BP-12434BP

PATIENT
  Age: 29 Year
  Sex: Male

DRUGS (4)
  1. AGGRENOX [Suspect]
  2. ATENOLOL [Concomitant]
     Dates: start: 20080717
  3. HYDROCHLOROTHIAZIDE [Concomitant]
     Route: 048
     Dates: start: 20080717
  4. LIPITOR [Concomitant]
     Dates: start: 20080804

REACTIONS (2)
  - EPISTAXIS [None]
  - HYPERTENSION [None]
